FAERS Safety Report 19873662 (Version 1)
Quarter: 2021Q3

REPORT INFORMATION
  Report Type: Spontaneous
  Country: US (occurrence: US)
  Receive Date: 20210923
  Receipt Date: 20210923
  Transmission Date: 20211014
  Serious: Yes (Life-Threatening)
  Sender: FDA-Public Use
  Company Number: None

PATIENT
  Age: 29 Year
  Sex: Male
  Weight: 103.5 kg

DRUGS (1)
  1. BAMLANIVIMAB/ETESEVIMAB COMBINATION [Suspect]
     Active Substance: BAMLANIVIMAB\ETESEVIMAB
     Indication: COVID-19
     Route: 041
     Dates: start: 20210921, end: 20210921

REACTIONS (5)
  - Swollen tongue [None]
  - Anaphylactic reaction [None]
  - Urticaria [None]
  - Lip swelling [None]
  - Infusion related reaction [None]

NARRATIVE: CASE EVENT DATE: 20210921
